FAERS Safety Report 20816005 (Version 2)
Quarter: 2022Q2

REPORT INFORMATION
  Report Type: Other
  Country: US (occurrence: None)
  Receive Date: 20220511
  Receipt Date: 20220629
  Transmission Date: 20220720
  Serious: Yes (Other)
  Sender: FDA-Public Use
  Company Number: US-ROCHE-3088614

PATIENT
  Age: 55 Year
  Sex: Female
  Weight: 79.450 kg

DRUGS (1)
  1. OCREVUS [Suspect]
     Active Substance: OCRELIZUMAB
     Indication: Multiple sclerosis
     Dosage: DATE OF TREATMENT: 13/FEB/2020, 27/FEB/2020, 20/AUG/2020, 25/MAR/2021, 23/SEP/2021
     Route: 042
     Dates: start: 2019

REACTIONS (3)
  - Skin cancer [Recovered/Resolved]
  - COVID-19 pneumonia [Recovered/Resolved]
  - COVID-19 [Recovered/Resolved]

NARRATIVE: CASE EVENT DATE: 20211231
